APPROVED DRUG PRODUCT: DEXTROSE 5% IN RINGER'S IN PLASTIC CONTAINER
Active Ingredient: CALCIUM CHLORIDE; DEXTROSE; POTASSIUM CHLORIDE; SODIUM CHLORIDE
Strength: 33MG/100ML;5GM/100ML;30MG/100ML;860MG/100ML
Dosage Form/Route: INJECTABLE;INJECTION
Application: N016695 | Product #001
Applicant: BAXTER HEALTHCARE CORP
Approved: Approved Prior to Jan 1, 1982 | RLD: No | RS: No | Type: DISCN